FAERS Safety Report 19035636 (Version 2)
Quarter: 2021Q1

REPORT INFORMATION
  Report Type: Spontaneous
  Country: SK (occurrence: SI)
  Receive Date: 20210320
  Receipt Date: 20210328
  Transmission Date: 20210420
  Serious: Yes (Other)
  Sender: FDA-Public Use
  Company Number: SK-JNJFOC-20210331700

PATIENT
  Age: 76 Year
  Sex: Female

DRUGS (5)
  1. BISOPROLOL [Concomitant]
     Active Substance: BISOPROLOL
     Dosage: 1.25 MG, BID
  2. CHOLECALCIFEROL [Concomitant]
     Active Substance: CHOLECALCIFEROL
     Dosage: 35 GTT PER WEEK
  3. ROSUVASTATIN. [Concomitant]
     Active Substance: ROSUVASTATIN
     Dosage: 10 MG, QD
  4. XARELTO [Suspect]
     Active Substance: RIVAROXABAN
     Indication: PRODUCT USED FOR UNKNOWN INDICATION
     Dosage: 15 MG, QD
     Route: 048
  5. PERINDOPRIL AMLODIPIN MEPHA [Concomitant]
     Dosage: 8 MG/10 MG

REACTIONS (2)
  - Dyspnoea [Unknown]
  - Atrial fibrillation [Unknown]
